FAERS Safety Report 10675973 (Version 7)
Quarter: 2019Q1

REPORT INFORMATION
  Report Type: Spontaneous
  Country: US (occurrence: US)
  Receive Date: 20141225
  Receipt Date: 20190305
  Transmission Date: 20190417
  Serious: Yes (Death)
  Sender: FDA-Public Use
  Company Number: US-JNJFOC-20141216969

PATIENT
  Age: 8 Year
  Sex: Female

DRUGS (2)
  1. UNSPECIFIED ROBITUSSIN [Interacting]
     Active Substance: GUAIFENESIN
     Indication: PRODUCT USED FOR UNKNOWN INDICATION
     Route: 065
  2. MOTRIN IB [Suspect]
     Active Substance: IBUPROFEN
     Indication: PRODUCT USED FOR UNKNOWN INDICATION
     Route: 065

REACTIONS (4)
  - Drug interaction [Fatal]
  - Brain injury [Fatal]
  - Myocardial infarction [Fatal]
  - Cerebrovascular accident [Fatal]
